FAERS Safety Report 5457019-1 (Version None)
Quarter: 2007Q3

REPORT INFORMATION
  Report Type: 
  Country: None (occurrence: None)
  Receive Date: 20070918
  Receipt Date: 20070531
  Transmission Date: 20080115
  Serious: Yes (Other)
  Sender: FDA-Public Use
  Company Number: US-ASTRAZENECA-2006UW27545

PATIENT
  Age: 38 Year
  Sex: Female
  Weight: 88.2 kg

DRUGS (2)
  1. SEROQUEL [Suspect]
     Indication: DEPRESSION
     Route: 048
     Dates: start: 20001101
  2. RISPERDAL [Concomitant]

REACTIONS (5)
  - BACK DISORDER [None]
  - HEPATITIS C [None]
  - HIV TEST POSITIVE [None]
  - JOINT INJURY [None]
  - PANCREATITIS [None]
